FAERS Safety Report 16101379 (Version 1)
Quarter: 2019Q1

REPORT INFORMATION
  Report Type: Spontaneous
  Country: JP (occurrence: JP)
  Receive Date: 20190321
  Receipt Date: 20190321
  Transmission Date: 20190418
  Serious: Yes (Other)
  Sender: FDA-Public Use
  Company Number: JP-PFIZER INC-2018510780

PATIENT
  Age: 66 Year
  Sex: Male
  Weight: 46.7 kg

DRUGS (20)
  1. VFEND [Suspect]
     Active Substance: VORICONAZOLE
     Indication: PNEUMONIA
  2. HIRUDOID [Concomitant]
     Active Substance: GLYCOSAMINOGLYCANS
     Indication: DRY SKIN
     Dosage: UNK UNK, 1X/DAY
     Route: 061
     Dates: start: 20171125
  3. ALLOID G [Concomitant]
     Active Substance: SODIUM ALGINATE
     Indication: DECREASED APPETITE
     Dosage: 20 ML, 3X/DAY
     Route: 048
     Dates: start: 20180819, end: 20180824
  4. ZITHROMAC SR [Concomitant]
     Active Substance: AZITHROMYCIN DIHYDRATE
     Indication: PYREXIA
     Dosage: 2 G, 1X/DAY
     Route: 048
     Dates: start: 20180816, end: 20180816
  5. CICLOSPORIN A [Concomitant]
     Active Substance: CYCLOSPORINE
     Dosage: UNK
  6. AMLODIN [Concomitant]
     Active Substance: AMLODIPINE BESYLATE
     Indication: HYPERTENSION
     Dosage: 5 MG, 1X/DAY
     Route: 048
     Dates: start: 20180106
  7. ZOSIN [Concomitant]
     Active Substance: CLARITHROMYCIN
     Indication: PNEUMONIA
  8. NEORAL [Concomitant]
     Active Substance: CYCLOSPORINE
     Indication: MYELODYSPLASTIC SYNDROME
     Dosage: 50 MG, 2X/DAY
     Route: 048
     Dates: start: 20180131
  9. OMEPRAZON [Concomitant]
     Active Substance: OMEPRAZOLE
     Indication: PROPHYLAXIS
     Dosage: 10 MG, 1X/DAY
     Route: 048
     Dates: start: 20171125
  10. HIRUDOID [Concomitant]
     Active Substance: GLYCOSAMINOGLYCANS
     Indication: THERAPEUTIC SKIN CARE TOPICAL
  11. MIYA-BM [Concomitant]
     Active Substance: CLOSTRIDIUM BUTYRICUM SPORES STRAIN M-55
     Indication: PROPHYLAXIS AGAINST DIARRHOEA
     Dosage: 1 G, 3X/DAY
     Route: 048
     Dates: start: 20180817
  12. ZITHROMAC SR [Concomitant]
     Active Substance: AZITHROMYCIN DIHYDRATE
     Indication: PNEUMONIA
  13. NEORAL [Concomitant]
     Active Substance: CYCLOSPORINE
     Indication: TRANSPLANT
  14. MUCOSTA [Concomitant]
     Active Substance: REBAMIPIDE
     Indication: NAUSEA
     Dosage: 100 MG, 3X/DAY
     Route: 048
     Dates: start: 20180530, end: 20180828
  15. PRIMPERAN [Concomitant]
     Active Substance: METOCLOPRAMIDE HYDROCHLORIDE
     Indication: NAUSEA
     Dosage: 5 MG, 3X/DAY
     Route: 048
     Dates: start: 20180530, end: 20180827
  16. NEORAL [Concomitant]
     Active Substance: CYCLOSPORINE
     Indication: MYELOPROLIFERATIVE NEOPLASM
  17. ZOSIN [Concomitant]
     Active Substance: CLARITHROMYCIN
     Indication: PYREXIA
     Dosage: 4.5 G, 3X/DAY
     Route: 041
     Dates: start: 20180815, end: 20180823
  18. VFEND [Suspect]
     Active Substance: VORICONAZOLE
     Indication: FUNGAL INFECTION
     Dosage: 300 MG, 2X/DAY
     Route: 048
     Dates: start: 20180815, end: 20180820
  19. ACTONEL [Concomitant]
     Active Substance: RISEDRONATE SODIUM
     Indication: OSTEOPOROSIS PROPHYLAXIS
     Dosage: 17.5 MG, WEEKLY
     Route: 048
     Dates: start: 20180310
  20. CORTRIL [HYDROCORTISONE] [Concomitant]
     Indication: GRAFT VERSUS HOST DISEASE
     Dosage: 10 MG, 1X/DAY
     Route: 048
     Dates: start: 20180818

REACTIONS (3)
  - Condition aggravated [Recovered/Resolved]
  - Hepatic function abnormal [Recovered/Resolved]
  - Drug-induced liver injury [Recovered/Resolved]

NARRATIVE: CASE EVENT DATE: 20180820
